FAERS Safety Report 11851775 (Version 1)
Quarter: 2015Q4

REPORT INFORMATION
  Report Type: Spontaneous
  Country: US (occurrence: US)
  Receive Date: 20151218
  Receipt Date: 20151218
  Transmission Date: 20160305
  Serious: Yes (Hospitalization, Other)
  Sender: FDA-Public Use
  Company Number: US-BAYER-2015-489421

PATIENT
  Age: 35 Year
  Sex: Female
  Weight: 54.47 kg

DRUGS (11)
  1. YAZ [Suspect]
     Active Substance: DROSPIRENONE\ETHINYL ESTRADIOL
  2. LISINOPRIL. [Concomitant]
     Active Substance: LISINOPRIL
  3. ETIDRONATE [Concomitant]
     Active Substance: ETIDRONATE DISODIUM
  4. GIANVI [Suspect]
     Active Substance: DROSPIRENONE\ETHINYL ESTRADIOL
  5. LIDOCAINE. [Concomitant]
     Active Substance: LIDOCAINE
  6. AMANTADINE [Concomitant]
     Active Substance: AMANTADINE
  7. RITALIN [Concomitant]
     Active Substance: METHYLPHENIDATE HYDROCHLORIDE
  8. INDOCIN [Concomitant]
     Active Substance: INDOMETHACIN\INDOMETHACIN SODIUM
  9. NORVASC [Concomitant]
     Active Substance: AMLODIPINE BESYLATE
  10. ARICEPT [Concomitant]
     Active Substance: DONEPEZIL HYDROCHLORIDE
  11. PRAVASTATIN [Concomitant]
     Active Substance: PRAVASTATIN\PRAVASTATIN SODIUM

REACTIONS (5)
  - Intracranial aneurysm [None]
  - Embolism arterial [None]
  - Subarachnoid haemorrhage [None]
  - Axillary vein thrombosis [None]
  - Intracranial pressure increased [None]

NARRATIVE: CASE EVENT DATE: 20111001
